FAERS Safety Report 24654997 (Version 2)
Quarter: 2024Q4

REPORT INFORMATION
  Report Type: Report from Study
  Country: CH (occurrence: CH)
  Receive Date: 20241122
  Receipt Date: 20241212
  Transmission Date: 20250114
  Serious: Yes (Life-Threatening)
  Sender: ABBVIE
  Company Number: CH-ABBVIE-6012970

PATIENT
  Age: 82 Year
  Sex: Male

DRUGS (2)
  1. CARBIDOPA\LEVODOPA [Suspect]
     Active Substance: CARBIDOPA\LEVODOPA
     Indication: Parkinson^s disease
     Dosage: MD: 3.5 ML, CRD: 3.6 ML/H, ED: 1.0 ML, CRN: 2.6 ML/H, 24H THERAPY
     Route: 050
     Dates: start: 20240510
  2. CARBIDOPA\LEVODOPA [Suspect]
     Active Substance: CARBIDOPA\LEVODOPA
     Route: 050
     Dates: start: 20171212

REACTIONS (7)
  - General physical health deterioration [Recovering/Resolving]
  - Abdominal pain [Recovering/Resolving]
  - Infrequent bowel movements [Recovering/Resolving]
  - Bedridden [Recovering/Resolving]
  - Fluid intake reduced [Unknown]
  - Hypophagia [Unknown]
  - Constipation [Unknown]

NARRATIVE: CASE EVENT DATE: 20241001
